FAERS Safety Report 7409314-4 (Version None)
Quarter: 2011Q2

REPORT INFORMATION
  Report Type: 
  Country: None (occurrence: None)
  Receive Date: 20110412
  Receipt Date: 20110406
  Transmission Date: 20111010
  Serious: Yes (Other)
  Sender: FDA-Public Use
  Company Number: B0712338A

PATIENT
  Sex: Female

DRUGS (2)
  1. VENTOLIN [Concomitant]
     Indication: ASTHMA
     Route: 065
  2. ZYNTABAC [Suspect]
     Indication: SMOKING CESSATION THERAPY
     Route: 048
     Dates: start: 20110401

REACTIONS (1)
  - ASTHMATIC CRISIS [None]
